FAERS Safety Report 6494825-9 (Version None)
Quarter: 2009Q4

REPORT INFORMATION
  Report Type: 
  Country: None (occurrence: None)
  Receive Date: 20091214
  Receipt Date: 20090330
  Transmission Date: 20100525
  Serious: No
  Sender: FDA-Public Use
  Company Number: US-BRISTOL-MYERS SQUIBB COMPANY-14566665

PATIENT
  Age: 20 Year
  Sex: Female
  Weight: 78 kg

DRUGS (3)
  1. ABILIFY [Suspect]
     Indication: BIPOLAR DISORDER
     Dosage: DOSE REDUCED TO 5MG QD[LAST DOSE]
     Dates: start: 20090101, end: 20090325
  2. CONCERTA [Concomitant]
     Dosage: SLOWLY DISCONTINUED
  3. LEXAPRO [Concomitant]

REACTIONS (1)
  - EYE ROLLING [None]
